FAERS Safety Report 10155785 (Version 2)
Quarter: 2014Q2

REPORT INFORMATION
  Report Type: Spontaneous
  Country: US (occurrence: US)
  Receive Date: 20140506
  Receipt Date: 20140610
  Transmission Date: 20141212
  Serious: No
  Sender: FDA-Public Use
  Company Number: US-B.I. PHARMACEUTICALS,INC./RIDGEFIELD-2014-BI-19009BP

PATIENT
  Age: 67 Year
  Sex: Female
  Weight: 77 kg

DRUGS (10)
  1. SPIRIVA [Suspect]
     Indication: CHRONIC OBSTRUCTIVE PULMONARY DISEASE
     Dosage: 18 MCG
     Route: 055
     Dates: start: 2006
  2. ADVAIR [Concomitant]
     Indication: CHRONIC OBSTRUCTIVE PULMONARY DISEASE
     Dosage: FORMULATION: INHALATION SPRAY; DAILY DOSE AND STRENGTH: 250 MG/50 MG
     Route: 055
  3. PROAIR [Concomitant]
     Indication: CHRONIC OBSTRUCTIVE PULMONARY DISEASE
     Dosage: FORMULATION: INHALATION SPRAY
     Route: 055
  4. ASPIRIN [Concomitant]
     Indication: MYOCARDIAL INFARCTION
     Dosage: 81 MG
     Route: 048
  5. LIPITOR [Concomitant]
     Indication: MYOCARDIAL INFARCTION
     Dosage: 40 MG
     Route: 048
  6. LISINOPRIL [Concomitant]
     Indication: MYOCARDIAL INFARCTION
     Dosage: 20 MG
     Route: 048
  7. METOPROLOL [Concomitant]
     Indication: MYOCARDIAL INFARCTION
     Dosage: 50 MG
     Route: 048
  8. BUPROPION [Concomitant]
     Indication: DEPRESSION
     Dosage: 300 MG
     Route: 048
  9. HCTZ [Concomitant]
     Indication: MYOCARDIAL INFARCTION
     Dosage: 25 MG
     Route: 048
  10. CILOSTAZOL [Concomitant]
     Indication: ANGIOPATHY
     Dosage: 50 MG
     Route: 048

REACTIONS (3)
  - Dyspnoea [Not Recovered/Not Resolved]
  - Product quality issue [Unknown]
  - Product quality issue [Unknown]
